FAERS Safety Report 7624170-7 (Version None)
Quarter: 2011Q3

REPORT INFORMATION
  Report Type: 
  Country: None (occurrence: None)
  Receive Date: 20110720
  Receipt Date: 20110720
  Transmission Date: 20111222
  Serious: Yes (Life-Threatening, Hospitalization)
  Sender: FDA-Public Use
  Company Number: None

PATIENT
  Age: 70 Year
  Sex: Female
  Weight: 110.22 kg

DRUGS (1)
  1. DABIGITRAN 150MG PO BID [Suspect]

REACTIONS (6)
  - DYSPNOEA [None]
  - HYPERTENSION [None]
  - BLOOD CREATININE INCREASED [None]
  - CHEST PAIN [None]
  - HAEMATOCHEZIA [None]
  - GASTROINTESTINAL HAEMORRHAGE [None]
